FAERS Safety Report 7147380 (Version 3)
Quarter: 2016Q1

REPORT INFORMATION
  Report Type: Spontaneous
  Country: CH (occurrence: CH)
  Receive Date: 20091013
  Receipt Date: 20160211
  Transmission Date: 20160526
  Serious: Yes (Hospitalization, Congenital Anomaly, Other)
  Sender: FDA-Public Use
  Company Number: CH-BRISTOL-MYERS SQUIBB COMPANY-14811772

PATIENT
  Sex: Male
  Weight: 2.8 kg

DRUGS (4)
  1. ACIDUM FOLICUM [Concomitant]
     Active Substance: FOLIC ACID
     Indication: PRODUCT USED FOR UNKNOWN INDICATION
     Dosage: UNK
     Route: 064
  2. EFFEXOR [Suspect]
     Active Substance: VENLAFAXINE HYDROCHLORIDE
     Indication: PRODUCT USED FOR UNKNOWN INDICATION
     Dosage: EFEXOR EX
     Route: 064
     Dates: start: 20070602, end: 20090109
  3. VITAMINS + MINERALS [Concomitant]
     Indication: PRODUCT USED FOR UNKNOWN INDICATION
     Dosage: UNK
     Route: 064
  4. ABILIFY [Suspect]
     Active Substance: ARIPIPRAZOLE
     Indication: PRODUCT USED FOR UNKNOWN INDICATION
     Dosage: 15 MG, QD
     Route: 064
     Dates: start: 200806, end: 20090822

REACTIONS (5)
  - Supernumerary nipple [Unknown]
  - Tobacco withdrawal symptoms [Unknown]
  - Anal abscess [Recovered/Resolved]
  - Congenital naevus [Unknown]
  - Foetal exposure during pregnancy [Unknown]
